FAERS Safety Report 10157220 (Version 2)
Quarter: 2014Q2

REPORT INFORMATION
  Report Type: Spontaneous
  Country: US (occurrence: US)
  Receive Date: 20140507
  Receipt Date: 20140528
  Transmission Date: 20141212
  Serious: Yes (Disabling, Other)
  Sender: FDA-Public Use
  Company Number: US-009507513-1405USA003153

PATIENT
  Sex: Female
  Weight: 81.63 kg

DRUGS (2)
  1. MIRALAX [Suspect]
     Indication: PRODUCT USED FOR UNKNOWN INDICATION
     Dosage: UNK, UNKNOWN
     Route: 048
     Dates: start: 1975
  2. MIRALAX [Suspect]
     Indication: CONSTIPATION

REACTIONS (6)
  - Cerebrovascular accident [Unknown]
  - Adverse event [Not Recovered/Not Resolved]
  - Neoplasm malignant [Recovering/Resolving]
  - Visual impairment [Not Recovered/Not Resolved]
  - Liver disorder [Not Recovered/Not Resolved]
  - Product contamination [Unknown]
